FAERS Safety Report 24878292 (Version 2)
Quarter: 2025Q1

REPORT INFORMATION
  Report Type: Spontaneous
  Country: US (occurrence: US)
  Receive Date: 20250123
  Receipt Date: 20250224
  Transmission Date: 20250409
  Serious: Yes (Other)
  Sender: CSL BEHRING
  Company Number: US-BEH-2025192434

PATIENT
  Age: 20 Year
  Sex: Female

DRUGS (1)
  1. HUMATE-P [Suspect]
     Active Substance: HUMAN COAGULATION FACTOR VIII/VON WILLEBRAND FACTOR COMPLEX
     Indication: Von Willebrand^s disease
     Route: 042
     Dates: start: 20231009

REACTIONS (1)
  - Influenza [Unknown]

NARRATIVE: CASE EVENT DATE: 20250104
